FAERS Safety Report 7237970-2 (Version None)
Quarter: 2011Q1

REPORT INFORMATION
  Report Type: 
  Country: None (occurrence: None)
  Receive Date: 20110121
  Receipt Date: 20110110
  Transmission Date: 20110831
  Serious: Yes (Hospitalization)
  Sender: FDA-Public Use
  Company Number: GXKR2011DK00544

PATIENT
  Sex: Male

DRUGS (1)
  1. IMADRAX [Suspect]
     Indication: RESPIRATORY TRACT INFECTION
     Route: 048
     Dates: start: 20091029

REACTIONS (11)
  - SUPERINFECTION [None]
  - ERYSIPELAS [None]
  - DERMATITIS EXFOLIATIVE [None]
  - PRURITUS [None]
  - EYE SWELLING [None]
  - RASH [None]
  - HYPERSENSITIVITY [None]
  - CHILLS [None]
  - DANDRUFF [None]
  - WEIGHT INCREASED [None]
  - SWELLING FACE [None]
